FAERS Safety Report 8668320 (Version 2)
Quarter: 2014Q2

REPORT INFORMATION
  Report Type: Report from Study
  Country: US (occurrence: US)
  Receive Date: 20120717
  Receipt Date: 20140627
  Transmission Date: 20141212
  Serious: Yes (Death)
  Sender: FDA-Public Use
  Company Number: US-ROCHE-1087265

PATIENT
  Sex: Female

DRUGS (12)
  1. LUCENTIS [Suspect]
     Indication: RETINAL VEIN OCCLUSION
     Route: 050
     Dates: start: 20111022, end: 20111028
  2. AVASTIN [Suspect]
     Indication: RETINAL VEIN OCCLUSION
     Route: 050
  3. ASA [Concomitant]
     Route: 065
  4. BUMETANIDE [Concomitant]
     Route: 065
  5. ZOCOR [Concomitant]
     Route: 065
  6. PLAVIX [Concomitant]
     Route: 065
  7. PREMARIN [Concomitant]
     Route: 065
  8. GLIPIZIDE [Concomitant]
     Route: 065
  9. WARFARIN [Concomitant]
     Route: 065
  10. CARDIZEM [Concomitant]
     Route: 065
  11. AUGMENTIN [Concomitant]
     Route: 065
  12. CYMBALTA [Concomitant]
     Route: 065

REACTIONS (1)
  - Death [Fatal]
